FAERS Safety Report 5158716-8 (Version None)
Quarter: 2006Q4

REPORT INFORMATION
  Report Type: 
  Country: None (occurrence: None)
  Receive Date: 20061128
  Receipt Date: 20061122
  Transmission Date: 20070319
  Serious: Yes (Other)
  Sender: FDA-Public Use
  Company Number: BR-GLAXOSMITHKLINE-A0628543A

PATIENT
  Age: 82 Year
  Sex: Male
  Weight: 46 kg

DRUGS (3)
  1. STELAZINE [Suspect]
     Indication: ANXIETY DISORDER
     Dosage: 5MG PER DAY
     Route: 048
     Dates: start: 20060701, end: 20061121
  2. ALPRAZOLAM [Concomitant]
     Dosage: .5MG PER DAY
     Route: 048
     Dates: start: 20060701
  3. AMITRIPTYLINE HCL [Concomitant]
     Dosage: 12.5MG PER DAY
     Route: 048
     Dates: start: 20060701

REACTIONS (4)
  - ACTIVATED PARTIAL THROMBOPLASTIN TIME PROLONGED [None]
  - COAGULOPATHY [None]
  - HAEMORRHAGE [None]
  - PROTHROMBIN TIME PROLONGED [None]
